FAERS Safety Report 15924156 (Version 1)
Quarter: 2019Q1

REPORT INFORMATION
  Report Type: Spontaneous
  Country: US (occurrence: US)
  Receive Date: 20190206
  Receipt Date: 20190206
  Transmission Date: 20190417
  Serious: Yes (Disabling)
  Sender: FDA-Public Use
  Company Number: None

PATIENT
  Age: 64 Year
  Sex: Female
  Weight: 78.9 kg

DRUGS (12)
  1. HYDROCHLOROTHIAZIDE. [Suspect]
     Active Substance: HYDROCHLOROTHIAZIDE
     Route: 048
     Dates: start: 20180621, end: 20190131
  2. ASPIRIN. [Concomitant]
     Active Substance: ASPIRIN
     Dates: start: 20161020, end: 20190131
  3. GABAPENTIN. [Concomitant]
     Active Substance: GABAPENTIN
     Dates: start: 20161020, end: 20190131
  4. AMITRIPTYLINE [Suspect]
     Active Substance: AMITRIPTYLINE
     Indication: DIABETIC NEUROPATHY
     Dosage: AT BEDTIME
     Route: 048
     Dates: start: 20180516, end: 20190131
  5. VITAMIN B12 [Concomitant]
     Active Substance: CYANOCOBALAMIN
     Dates: start: 20180516, end: 20190131
  6. BACLOFEN. [Concomitant]
     Active Substance: BACLOFEN
  7. ATORVASTATIN [Concomitant]
     Active Substance: ATORVASTATIN
     Dates: start: 20161016, end: 20190131
  8. METOPROLOL SUCCINATE. [Concomitant]
     Active Substance: METOPROLOL SUCCINATE
     Dates: start: 20170102, end: 20190131
  9. SENNA [Concomitant]
     Active Substance: SENNA LEAF\SENNOSIDES\SENNOSIDES A AND B
     Dates: start: 20181120, end: 20190131
  10. AMLODIPINE [Concomitant]
     Active Substance: AMLODIPINE BESYLATE
     Dates: start: 20170102, end: 20190131
  11. METFORMIN [Concomitant]
     Active Substance: METFORMIN HYDROCHLORIDE
     Dates: start: 20161006, end: 20190131
  12. LISINOPRIL. [Concomitant]
     Active Substance: LISINOPRIL
     Dates: start: 20161006, end: 20190131

REACTIONS (4)
  - Rash [None]
  - Therapy cessation [None]
  - Lichen planus [None]
  - Skin lesion [None]

NARRATIVE: CASE EVENT DATE: 20181120
